FAERS Safety Report 4565646-9 (Version None)
Quarter: 2005Q1

REPORT INFORMATION
  Report Type: 
  Country: None (occurrence: None)
  Receive Date: 20050125
  Receipt Date: 20050125
  Transmission Date: 20050727
  Serious: Yes (Other)
  Sender: FDA-Public Use
  Company Number: None

PATIENT
  Sex: Female
  Weight: 164.6557 kg

DRUGS (16)
  1. COUMADIN [Suspect]
     Indication: ANTIPHOSPHOLIPID ANTIBODIES
     Dosage: 7.5MG, 5 MG DAILY SAT  ORAL
     Route: 048
     Dates: start: 20040329, end: 20041129
  2. COUMADIN [Suspect]
     Indication: DEEP VEIN THROMBOSIS
     Dosage: 7.5MG, 5 MG DAILY SAT  ORAL
     Route: 048
     Dates: start: 20040329, end: 20041129
  3. ZONEGRAN [Suspect]
     Indication: MIGRAINE PROPHYLAXIS
     Dosage: 300MG   AT BEDTIME ORAL
     Route: 048
     Dates: start: 20041111, end: 20041129
  4. METHOTREXATE [Concomitant]
  5. LEXAPRO [Concomitant]
  6. PREDNISONE [Concomitant]
  7. BEXTRA [Concomitant]
  8. PLAQUENIL [Concomitant]
  9. VITAMIN C [Concomitant]
  10. NEXIUM [Concomitant]
  11. FOLIC ACID [Concomitant]
  12. VITAMIN B-12 [Concomitant]
  13. DIOVAN [Concomitant]
  14. MAXZIDE [Concomitant]
  15. PROMETHAZINE [Concomitant]
  16. IRON [Concomitant]

REACTIONS (1)
  - INTERNATIONAL NORMALISED RATIO INCREASED [None]
